FAERS Safety Report 9891638 (Version 1)
Quarter: 2014Q1

REPORT INFORMATION
  Report Type: Spontaneous
  Country: US (occurrence: None)
  Receive Date: 20140211
  Receipt Date: 20140211
  Transmission Date: 20141002
  Serious: Yes (Hospitalization)
  Sender: FDA-Public Use
  Company Number: None

PATIENT
  Age: 50 Year
  Sex: Female
  Weight: 62 kg

DRUGS (12)
  1. CLOZARIL [Suspect]
     Indication: SCHIZOPHRENIA
     Dosage: AP-PROX 7 MONTHS??3 TABLETS
     Route: 048
  2. CELEXA 20 MILLIGRAM [Concomitant]
  3. SYNTHROID 50 MCG [Concomitant]
  4. NEXIUM 40 MG [Concomitant]
  5. LAMLCTAL 100 MG [Concomitant]
  6. CLOZARIL 100 MG [Concomitant]
  7. COLACE [Concomitant]
  8. CYCLOCORT [Concomitant]
  9. VITAMIN D3 [Concomitant]
  10. WELLBUTRIN XL 150 MG [Concomitant]
  11. ASPIRIN 81 MG [Concomitant]
  12. MULTIVITAMIN [Concomitant]

REACTIONS (1)
  - Cardiomyopathy [None]
